FAERS Safety Report 20731236 (Version 6)
Quarter: 2022Q2

REPORT INFORMATION
  Report Type: Spontaneous
  Country: GB (occurrence: GB)
  Receive Date: 20220420
  Receipt Date: 20220613
  Transmission Date: 20220721
  Serious: Yes (Other)
  Sender: FDA-Public Use
  Company Number: GB-VIIV HEALTHCARE ULC-GB2020EME212616

PATIENT

DRUGS (27)
  1. ABACAVIR SULFATE\LAMIVUDINE\ZIDOVUDINE [Suspect]
     Active Substance: ABACAVIR SULFATE\LAMIVUDINE\ZIDOVUDINE
     Indication: HIV infection
     Dosage: UNK
  2. DARUNAVIR\RITONAVIR [Suspect]
     Active Substance: DARUNAVIR\RITONAVIR
     Indication: HIV infection
     Dosage: UNK, QD, TABLET
  3. DARUNAVIR\RITONAVIR [Suspect]
     Active Substance: DARUNAVIR\RITONAVIR
     Dosage: UNK
  4. RITONAVIR [Suspect]
     Active Substance: RITONAVIR
     Indication: HIV infection
     Dosage: UNK, QD
  5. RITONAVIR [Suspect]
     Active Substance: RITONAVIR
     Dosage: 1 DOSAGE FORM, QD
  6. RITONAVIR [Suspect]
     Active Substance: RITONAVIR
     Dosage: 1 DOSAGE FORM, QD
  7. LAMIVUDINE [Suspect]
     Active Substance: LAMIVUDINE
     Indication: HIV infection
     Dosage: UNK
  8. LAMIVUDINE [Suspect]
     Active Substance: LAMIVUDINE
     Dosage: UNK
  9. DARUNAVIR [Suspect]
     Active Substance: DARUNAVIR
     Indication: HIV infection
     Dosage: UNK
  10. DARUNAVIR [Suspect]
     Active Substance: DARUNAVIR
     Dosage: UNK, QD
  11. DARUNAVIR [Suspect]
     Active Substance: DARUNAVIR
     Dosage: 1 DOSAGE FORM, QD
  12. TRIUMEQ [Suspect]
     Active Substance: ABACAVIR SULFATE\DOLUTEGRAVIR SODIUM\LAMIVUDINE
     Indication: HIV infection
     Dosage: UNK
  13. KALETRA [Suspect]
     Active Substance: LOPINAVIR\RITONAVIR
     Indication: HIV infection
     Dosage: UNK
  14. KALETRA [Suspect]
     Active Substance: LOPINAVIR\RITONAVIR
     Dosage: UNK
  15. COMBIVIR [Suspect]
     Active Substance: LAMIVUDINE\ZIDOVUDINE
     Indication: HIV infection
     Dosage: UNK
  16. COMBIVIR [Suspect]
     Active Substance: LAMIVUDINE\ZIDOVUDINE
     Dosage: UNK
  17. EDURANT [Suspect]
     Active Substance: RILPIVIRINE HYDROCHLORIDE
     Indication: HIV infection
     Dosage: UNK
  18. EDURANT [Suspect]
     Active Substance: RILPIVIRINE HYDROCHLORIDE
     Dosage: UNK
  19. COBICISTAT\DARUNAVIR ETHANOLATE [Suspect]
     Active Substance: COBICISTAT\DARUNAVIR ETHANOLATE
     Indication: HIV infection
     Dosage: UNK
  20. ZIDOVUDINE [Suspect]
     Active Substance: ZIDOVUDINE
     Indication: HIV infection
     Dosage: UNK
  21. ZIDOVUDINE [Suspect]
     Active Substance: ZIDOVUDINE
     Dosage: UNK
  22. TYBOST [Suspect]
     Active Substance: COBICISTAT
     Indication: HIV infection
     Dosage: UNK
  23. TYBOST [Suspect]
     Active Substance: COBICISTAT
     Dosage: UNK
  24. ABACAVIR SULFATE [Suspect]
     Active Substance: ABACAVIR SULFATE
     Indication: HIV infection
     Dosage: UNK
  25. LOPINAVIR [Suspect]
     Active Substance: LOPINAVIR
     Indication: HIV infection
     Dosage: UNK
  26. COBICISTAT [Suspect]
     Active Substance: COBICISTAT
     Indication: HIV infection
     Dosage: UNK,245
  27. COBICISTAT [Suspect]
     Active Substance: COBICISTAT
     Dosage: UNK

REACTIONS (10)
  - Lipoedema [Unknown]
  - Low density lipoprotein increased [Unknown]
  - Memory impairment [Unknown]
  - Nerve injury [Unknown]
  - Lip discolouration [Unknown]
  - Skin discolouration [Unknown]
  - Nail discolouration [Unknown]
  - Somnolence [Unknown]
  - Neuropathy peripheral [Unknown]
  - Lipodystrophy acquired [Unknown]
